FAERS Safety Report 7576235-6 (Version None)
Quarter: 2011Q2

REPORT INFORMATION
  Report Type: 
  Country: None (occurrence: None)
  Receive Date: 20110623
  Receipt Date: 20110623
  Transmission Date: 20111010
  Serious: No
  Sender: FDA-Public Use
  Company Number: None

PATIENT
  Age: 61 Year
  Sex: Female

DRUGS (2)
  1. TRICOR [Suspect]
     Dates: start: 20081221, end: 20090512
  2. CIPROFLOXACIN [Suspect]
     Dates: start: 20090309, end: 20090323

REACTIONS (8)
  - ASPARTATE AMINOTRANSFERASE INCREASED [None]
  - HEPATIC STEATOSIS [None]
  - BLOOD BILIRUBIN INCREASED [None]
  - CHROMATURIA [None]
  - ALANINE AMINOTRANSFERASE INCREASED [None]
  - BLOOD ALKALINE PHOSPHATASE INCREASED [None]
  - JAUNDICE [None]
  - FAECES PALE [None]
